FAERS Safety Report 12508240 (Version 2)
Quarter: 2016Q4

REPORT INFORMATION
  Report Type: Spontaneous
  Country: US (occurrence: US)
  Receive Date: 20160629
  Receipt Date: 20161111
  Transmission Date: 20170207
  Serious: No
  Sender: FDA-Public Use
  Company Number: US-GLAXOSMITHKLINE-US2016086712

PATIENT
  Sex: Male

DRUGS (1)
  1. VENTOLIN HFA [Suspect]
     Active Substance: ALBUTEROL SULFATE
     Indication: CHRONIC OBSTRUCTIVE PULMONARY DISEASE
     Dosage: UNK UNK, PRN

REACTIONS (6)
  - Productive cough [Unknown]
  - Dyspnoea [Unknown]
  - Drug effect delayed [Unknown]
  - Drug ineffective [Unknown]
  - Dysphonia [Unknown]
  - Cough [Unknown]
